FAERS Safety Report 15400256 (Version 1)
Quarter: 2018Q3

REPORT INFORMATION
  Report Type: Spontaneous
  Country: US (occurrence: US)
  Receive Date: 20180919
  Receipt Date: 20180919
  Transmission Date: 20181010
  Serious: Yes (Hospitalization)
  Sender: FDA-Public Use
  Company Number: US-VISTAPHARM, INC.-VER201809-000847

PATIENT
  Age: 17 Year
  Sex: Male

DRUGS (1)
  1. VALPROIC ACID. [Suspect]
     Active Substance: VALPROIC ACID
     Indication: IDIOPATHIC GENERALISED EPILEPSY
     Dosage: 1500 MG (150 DAYS)

REACTIONS (5)
  - Condition aggravated [Unknown]
  - Cognitive disorder [Recovered/Resolved]
  - Generalised tonic-clonic seizure [Unknown]
  - Unresponsive to stimuli [Unknown]
  - Hyperammonaemic encephalopathy [Unknown]
